FAERS Safety Report 17478716 (Version 4)
Quarter: 2020Q2

REPORT INFORMATION
  Report Type: Report from Study
  Country: US (occurrence: US)
  Receive Date: 20200228
  Receipt Date: 20200618
  Transmission Date: 20200713
  Serious: Yes (Hospitalization, Other)
  Sender: FDA-Public Use
  Company Number: US-PFIZER INC-2020074507

PATIENT
  Age: 45 Year
  Sex: Female

DRUGS (2)
  1. IBRANCE [Suspect]
     Active Substance: PALBOCICLIB
     Dosage: 125 MG, CYCLIC (FOR 21 DAYS OF 28 DAY CYCLE)
     Route: 048
     Dates: start: 20200117
  2. IBRANCE [Suspect]
     Active Substance: PALBOCICLIB
     Indication: BREAST CANCER FEMALE
     Dosage: 125 MG, CYCLIC (CYCLE: 21 DAYS OF 28 DAY)
     Route: 048
     Dates: start: 20200114

REACTIONS (13)
  - Irritable bowel syndrome [Unknown]
  - Fatigue [Unknown]
  - Tachycardia [Unknown]
  - Arthralgia [Recovered/Resolved]
  - Myalgia [Recovered/Resolved]
  - Amnesia [Unknown]
  - Gastrooesophageal reflux disease [Unknown]
  - Chills [Unknown]
  - Dizziness [Unknown]
  - Nausea [Not Recovered/Not Resolved]
  - Vertigo [Recovering/Resolving]
  - Abdominal pain upper [Unknown]
  - Bone pain [Unknown]

NARRATIVE: CASE EVENT DATE: 2020
